FAERS Safety Report 14120147 (Version 1)
Quarter: 2017Q4

REPORT INFORMATION
  Report Type: Spontaneous
  Country: US (occurrence: US)
  Receive Date: 20171024
  Receipt Date: 20171024
  Transmission Date: 20180321
  Serious: Yes (Other)
  Sender: FDA-Public Use
  Company Number: US-BRISTOL-MYERS SQUIBB COMPANY-BMS-2017-094064

PATIENT
  Sex: Female

DRUGS (3)
  1. XANAX [Concomitant]
     Active Substance: ALPRAZOLAM
     Indication: ATRIAL FIBRILLATION
     Route: 005
  2. ELIQUIS [Suspect]
     Active Substance: APIXABAN
     Indication: THROMBOSIS PROPHYLAXIS
     Route: 065
  3. ELIQUIS [Suspect]
     Active Substance: APIXABAN
     Indication: CEREBROVASCULAR ACCIDENT PROPHYLAXIS
     Dosage: 5 MG, BID
     Route: 048
     Dates: start: 201605

REACTIONS (10)
  - Haemorrhage [Unknown]
  - Skin discolouration [Unknown]
  - Heart rate abnormal [Unknown]
  - Pain in extremity [Unknown]
  - Malaise [Unknown]
  - Laceration [Unknown]
  - Weight decreased [Unknown]
  - Off label use [Unknown]
  - Thrombosis [Unknown]
  - Pernicious anaemia [Unknown]
